FAERS Safety Report 20833730 (Version 1)
Quarter: 2022Q2

REPORT INFORMATION
  Report Type: Spontaneous
  Country: US (occurrence: US)
  Receive Date: 20220516
  Receipt Date: 20220516
  Transmission Date: 20220721
  Serious: No
  Sender: FDA-Public Use
  Company Number: US-PFIZER INC-202200675544

PATIENT
  Age: 59 Year
  Sex: Female

DRUGS (5)
  1. PAXLOVID [Suspect]
     Active Substance: NIRMATRELVIR\RITONAVIR
     Indication: COVID-19 treatment
     Dosage: UNK
     Dates: start: 20220416, end: 20220420
  2. PROZAC [Concomitant]
     Active Substance: FLUOXETINE HYDROCHLORIDE
     Dosage: UNK
  3. NEXIUM [Concomitant]
     Active Substance: ESOMEPRAZOLE MAGNESIUM
     Dosage: UNK
  4. GABAPENTIN [Concomitant]
     Active Substance: GABAPENTIN
  5. KLONOPIN [Concomitant]
     Active Substance: CLONAZEPAM
     Dosage: UNK

REACTIONS (8)
  - Rhinorrhoea [Not Recovered/Not Resolved]
  - Headache [Recovered/Resolved]
  - Sneezing [Recovered/Resolved]
  - Ear pain [Recovered/Resolved]
  - Pyrexia [Recovered/Resolved]
  - Chills [Recovered/Resolved]
  - Feeling abnormal [Unknown]
  - Anosmia [Recovered/Resolved]

NARRATIVE: CASE EVENT DATE: 20220424
